FAERS Safety Report 19599160 (Version 1)
Quarter: 2021Q3

REPORT INFORMATION
  Report Type: Spontaneous
  Country: US (occurrence: US)
  Receive Date: 20210723
  Receipt Date: 20210723
  Transmission Date: 20211014
  Serious: Yes (Hospitalization)
  Sender: FDA-Public Use
  Company Number: None

PATIENT
  Age: 68 Year
  Sex: Male
  Weight: 80.2 kg

DRUGS (1)
  1. METHOTREXATE. [Suspect]
     Active Substance: METHOTREXATE
     Indication: RHEUMATOID ARTHRITIS
     Dosage: ?          OTHER FREQUENCY:WEEKLY;?
     Route: 048

REACTIONS (6)
  - Confusional state [None]
  - Fall [None]
  - Inappropriate schedule of product administration [None]
  - Asthenia [None]
  - Diarrhoea [None]
  - Pancytopenia [None]

NARRATIVE: CASE EVENT DATE: 20200831
